FAERS Safety Report 5174426-5 (Version None)
Quarter: 2006Q4

REPORT INFORMATION
  Report Type: 
  Country: None (occurrence: None)
  Receive Date: 20061206
  Receipt Date: 20061122
  Transmission Date: 20070319
  Serious: Yes (Hospitalization)
  Sender: FDA-Public Use
  Company Number: 2006-150814-NL

PATIENT
  Age: 33 Year
  Sex: Female

DRUGS (1)
  1. NUVARING [Suspect]
     Dosage: DF
     Dates: start: 20060425, end: 20060425

REACTIONS (4)
  - HYPOAESTHESIA [None]
  - MOVEMENT DISORDER [None]
  - PARAESTHESIA [None]
  - VISION BLURRED [None]
